FAERS Safety Report 4302379-8 (Version None)
Quarter: 2004Q1

REPORT INFORMATION
  Report Type: 
  Country: None (occurrence: None)
  Receive Date: 20040126
  Receipt Date: 20031013
  Transmission Date: 20041129
  Serious: No
  Sender: FDA-Public Use
  Company Number: USA031049770

PATIENT
  Sex: Male

DRUGS (1)
  1. STRATTERA [Suspect]
     Dosage: 40 MG/DAY
     Dates: start: 20031009

REACTIONS (5)
  - ANHIDROSIS [None]
  - COLD SWEAT [None]
  - DECREASED APPETITE [None]
  - ERECTILE DYSFUNCTION [None]
  - FEELING ABNORMAL [None]
